FAERS Safety Report 8381038-9 (Version None)
Quarter: 2012Q2

REPORT INFORMATION
  Report Type: 
  Country: None (occurrence: None)
  Receive Date: 20120511
  Receipt Date: 20111205
  Transmission Date: 20120825
  Serious: Yes (Other)
  Sender: FDA-Public Use
  Company Number: 2011030546

PATIENT
  Age: 41 Year
  Sex: Female

DRUGS (17)
  1. FRAGMIN /00889602/ (HEPARIN-FRACTION, SODIUM SALT) [Concomitant]
  2. VASOPRESSIN (VASOPRESSIN) [Concomitant]
  3. PRIVIGEN [Suspect]
     Dosage: 60 MG QD INTRAVENOUS (NOT OTHERWISE SPECIFEID)
     Route: 042
  4. ACETAMINOPHEN [Suspect]
     Dosage: VIA FEEDING TUBE OTHER
  5. DIMENHYDRINATE [Concomitant]
  6. DAILY MULTIIVITAMIN (DAILY MULTIVITAMIN) [Concomitant]
  7. NOREPINEPHRINE BITARTRATE [Concomitant]
  8. ALBUTEROL SULFATE [Concomitant]
  9. SENNOSIDE (SENNOSIDE A+B CALCIUM) [Concomitant]
  10. CEFTRIAXONE [Suspect]
     Dosage: INTRAVENOUS (NOT OTHERWISE SPECIFIED)
     Route: 042
  11. COTAZYM /00014701/ (PANCREATIN) [Concomitant]
  12. DOCUSATE SODIUM (DOCUSATE SODIUM) [Concomitant]
  13. MIDAZOLAM HCL [Concomitant]
  14. CHLORHEXIDINE GLUCONATE [Concomitant]
  15. SODIUM BICARBONATE IN PLASTIC CONTAINER [Concomitant]
  16. LEVOFLOXACIN [Concomitant]
  17. METOCLOPRAMIDE [Concomitant]

REACTIONS (8)
  - BETA HAEMOLYTIC STREPTOCOCCAL INFECTION [None]
  - HAEMOGLOBIN DECREASED [None]
  - RED BLOOD CELL AGGLUTINATION PRESENT [None]
  - JAUNDICE [None]
  - HAEMOLYSIS [None]
  - RED BLOOD CELL SPHEROCYTES PRESENT [None]
  - BLOOD BILIRUBIN INCREASED [None]
  - RETICULOCYTE COUNT INCREASED [None]
